FAERS Safety Report 25750651 (Version 1)
Quarter: 2025Q3

REPORT INFORMATION
  Report Type: Spontaneous
  Country: US (occurrence: None)
  Receive Date: 20250829
  Receipt Date: 20250829
  Transmission Date: 20251021
  Serious: No
  Sender: FDA-CTU
  Company Number: None

PATIENT
  Age: 66 Year
  Sex: Female

DRUGS (1)
  1. EBGLYSS [Suspect]
     Active Substance: LEBRIKIZUMAB-LBKZ
     Indication: Dermatitis atopic
     Dosage: 250 MG : EVERY OTHER WEEK SUBCUTANEOUS?
     Route: 058
     Dates: start: 20250623, end: 20250805

REACTIONS (1)
  - Rash [None]

NARRATIVE: CASE EVENT DATE: 20250805
